FAERS Safety Report 15399764 (Version 2)
Quarter: 2018Q3

REPORT INFORMATION
  Report Type: Report from Study
  Country: US (occurrence: US)
  Receive Date: 20180918
  Receipt Date: 20180925
  Transmission Date: 20181010
  Serious: Yes (Life-Threatening, Hospitalization, Other)
  Sender: FDA-Public Use
  Company Number: US-BRISTOL-MYERS SQUIBB COMPANY-BMS-2018-081065

PATIENT
  Age: 27 Year
  Sex: Male
  Weight: 87.9 kg

DRUGS (2)
  1. IPILIMUMAB [Suspect]
     Active Substance: IPILIMUMAB
     Indication: ADRENOCORTICAL CARCINOMA
     Dosage: 1 MG/KG, UNK
     Route: 042
     Dates: start: 20170718, end: 20180810
  2. NIVOLUMAB [Suspect]
     Active Substance: NIVOLUMAB
     Indication: ADRENOCORTICAL CARCINOMA
     Dosage: 240 MG, UNK
     Route: 042
     Dates: start: 20170718, end: 20180810

REACTIONS (2)
  - Non-cardiac chest pain [Recovering/Resolving]
  - Diabetic ketoacidosis [Unknown]

NARRATIVE: CASE EVENT DATE: 20180820
